FAERS Safety Report 6581755-7 (Version None)
Quarter: 2010Q1

REPORT INFORMATION
  Report Type: 
  Country: None (occurrence: None)
  Receive Date: 20100215
  Receipt Date: 20100205
  Transmission Date: 20100710
  Serious: Yes (Other)
  Sender: FDA-Public Use
  Company Number: PHHY2010AR06287

PATIENT
  Sex: Female

DRUGS (2)
  1. RASILEZ D [Suspect]
     Indication: HYPERTENSION
     Dosage: 1 TABLET A DAY
     Dates: start: 20091101
  2. AMLODIPINE [Suspect]

REACTIONS (2)
  - HYPOTENSION [None]
  - TACHYCARDIA [None]
